FAERS Safety Report 16442341 (Version 1)
Quarter: 2019Q2

REPORT INFORMATION
  Report Type: Report from Study
  Country: None (occurrence: US)
  Receive Date: 20190617
  Receipt Date: 20190617
  Transmission Date: 20190711
  Serious: Yes (Hospitalization, Other)
  Sender: FDA-Public Use
  Company Number: US-US WORLDMEDS, LLC-USW201904-000689

PATIENT
  Sex: Male
  Weight: 72.57 kg

DRUGS (12)
  1. GABAPENTIN. [Concomitant]
     Active Substance: GABAPENTIN
  2. VITAMIN D3 [Concomitant]
     Active Substance: CHOLECALCIFEROL
  3. CODEINE [Concomitant]
     Active Substance: CODEINE
  4. CHLOROACETONE [Concomitant]
  5. PAROXETINE. [Concomitant]
     Active Substance: PAROXETINE
  6. NEUPRO [Concomitant]
     Active Substance: ROTIGOTINE
  7. CLONAZEPAM. [Concomitant]
     Active Substance: CLONAZEPAM
  8. CARBIDOPA-LEVODOPA [Concomitant]
     Active Substance: CARBIDOPA\LEVODOPA
  9. SPIRONOLACTONE. [Concomitant]
     Active Substance: SPIRONOLACTONE
  10. APOKYN [Suspect]
     Active Substance: APOMORPHINE HYDROCHLORIDE
     Indication: PARKINSON^S DISEASE
     Route: 058
  11. INSULIN NOVOLOG [Concomitant]
  12. GLUCAGON. [Concomitant]
     Active Substance: GLUCAGON

REACTIONS (5)
  - Necrotising fasciitis [Recovered/Resolved with Sequelae]
  - Grip strength decreased [Unknown]
  - Pain [Unknown]
  - Pain in extremity [Unknown]
  - Cardiac arrest [Recovered/Resolved]

NARRATIVE: CASE EVENT DATE: 2018
